FAERS Safety Report 21108054 (Version 1)
Quarter: 2022Q3

REPORT INFORMATION
  Report Type: Spontaneous
  Country: US (occurrence: US)
  Receive Date: 20220720
  Receipt Date: 20220720
  Transmission Date: 20221027
  Serious: No
  Sender: FDA-Public Use
  Company Number: US-SA-SAC20220715000431

PATIENT
  Sex: Female

DRUGS (8)
  1. AUBAGIO [Suspect]
     Active Substance: TERIFLUNOMIDE
     Indication: Multiple sclerosis
     Dosage: 14 MG QD
     Route: 048
     Dates: start: 2018
  2. FISH OIL [Concomitant]
     Active Substance: FISH OIL
  3. VITAMIN D NOS [Concomitant]
     Active Substance: VITAMIN D NOS
  4. ALPRAZOLAM [Concomitant]
     Active Substance: ALPRAZOLAM
  5. SERTRALINE HYDROCHLORIDE [Concomitant]
     Active Substance: SERTRALINE HYDROCHLORIDE
  6. LEVOTHYROXINE [Concomitant]
     Active Substance: LEVOTHYROXINE
  7. ATORVASTATIN CALCIUM [Concomitant]
     Active Substance: ATORVASTATIN CALCIUM
  8. B12 ACTIVE [Concomitant]

REACTIONS (6)
  - Asthenia [Unknown]
  - Muscle spasticity [Unknown]
  - Feeling abnormal [Unknown]
  - Pyrexia [Unknown]
  - Bladder disorder [Unknown]
  - Pollakiuria [Unknown]
